FAERS Safety Report 5479137-4 (Version None)
Quarter: 2007Q4

REPORT INFORMATION
  Report Type: 
  Country: None (occurrence: None)
  Receive Date: 20071006
  Receipt Date: 20070923
  Transmission Date: 20080405
  Serious: Yes (Hospitalization)
  Sender: FDA-Public Use
  Company Number: US-ALLERGAN-0710449US

PATIENT
  Sex: Female

DRUGS (1)
  1. BOTOX [Suspect]
     Indication: MIGRAINE
     Dosage: UNK, SINGLE
     Route: 030
     Dates: start: 20070917, end: 20070917

REACTIONS (5)
  - BACK PAIN [None]
  - DIARRHOEA [None]
  - INJECTION SITE PAIN [None]
  - MENINGITIS VIRAL [None]
  - SKIN TIGHTNESS [None]
